FAERS Safety Report 25823820 (Version 3)
Quarter: 2025Q4

REPORT INFORMATION
  Report Type: Spontaneous
  Country: EU (occurrence: EU)
  Receive Date: 20250919
  Receipt Date: 20251120
  Transmission Date: 20260118
  Serious: Yes (Life-Threatening, Hospitalization, Other)
  Sender: OTSUKA
  Company Number: EU-MMM-Otsuka-TS0GH37I

PATIENT
  Age: 38 Year
  Sex: Female

DRUGS (7)
  1. ABILIFY [Suspect]
     Active Substance: ARIPIPRAZOLE
     Indication: Mental disorder
     Dosage: 10 MG, QD (IN EVENING)
     Route: 065
     Dates: start: 20250330
  2. ABILIFY [Suspect]
     Active Substance: ARIPIPRAZOLE
     Indication: Affective disorder
     Dosage: 5 MG, QD (IN THE EVENING)
     Route: 065
     Dates: start: 20250127, end: 20250127
  3. ABILIFY [Suspect]
     Active Substance: ARIPIPRAZOLE
     Indication: Depression
     Dosage: 10 MG, QD (IN EVENING)
     Route: 065
     Dates: start: 20250128, end: 20250207
  4. ABILIFY [Suspect]
     Active Substance: ARIPIPRAZOLE
     Indication: Phobia
     Dosage: 15 MG, QD (IN EVENING)
     Route: 065
     Dates: start: 20250208, end: 20250329
  5. ABILIFY [Suspect]
     Active Substance: ARIPIPRAZOLE
     Indication: Anxiety
  6. LOXAPINE [Concomitant]
     Active Substance: LOXAPINE
     Indication: Product used for unknown indication
     Dosage: 50 MG
     Route: 065
     Dates: start: 20241007, end: 20250125
  7. LOXAPINE [Concomitant]
     Active Substance: LOXAPINE
     Dosage: 25 MG
     Route: 065

REACTIONS (3)
  - Coma [Unknown]
  - Type 2 diabetes mellitus [Not Recovered/Not Resolved]
  - Off label use [Unknown]

NARRATIVE: CASE EVENT DATE: 20250127
